FAERS Safety Report 9689005 (Version 2)
Quarter: 2013Q4

REPORT INFORMATION
  Report Type: Report from Study
  Country: NL (occurrence: NL)
  Receive Date: 20131114
  Receipt Date: 20131209
  Transmission Date: 20140711
  Serious: Yes (Other)
  Sender: FDA-Public Use
  Company Number: NL-CELGENEUS-114-21880-13105873

PATIENT
  Age: 76 Year
  Sex: Male

DRUGS (8)
  1. REVLIMID [Suspect]
     Indication: PLASMA CELL MYELOMA
     Route: 048
     Dates: start: 20110728, end: 20120911
  2. MELPHALAN [Suspect]
     Indication: PLASMA CELL MYELOMA
     Route: 065
  3. PREDNISONE [Suspect]
     Indication: PLASMA CELL MYELOMA
     Route: 065
  4. ASCAL [Concomitant]
     Indication: THROMBOSIS PROPHYLAXIS
     Route: 048
     Dates: end: 20121105
  5. FLUVASTATINE [Concomitant]
     Indication: HYPERCHOLESTEROLAEMIA
     Route: 048
     Dates: end: 20121105
  6. NIFEDIPINE [Concomitant]
     Indication: ANGINA PECTORIS
     Route: 048
     Dates: end: 20121105
  7. OMEPRAZOLE [Concomitant]
     Indication: REFLUX GASTRITIS
     Route: 048
     Dates: end: 20121105
  8. PAMIDRONATE [Concomitant]
     Indication: PROPHYLAXIS
     Dosage: 30 MILLIGRAM
     Route: 041
     Dates: start: 20120229, end: 20121031

REACTIONS (1)
  - Myelodysplastic syndrome [Not Recovered/Not Resolved]
